FAERS Safety Report 26202438 (Version 1)
Quarter: 2025Q4

REPORT INFORMATION
  Report Type: Spontaneous
  Country: US (occurrence: US)
  Receive Date: 20251226
  Receipt Date: 20251226
  Transmission Date: 20260118
  Serious: Yes (Hospitalization)
  Sender: AMGEN
  Company Number: US-AMGEN-USASP2025254112

PATIENT
  Age: 63 Year
  Sex: Male

DRUGS (1)
  1. BLINCYTO [Suspect]
     Active Substance: BLINATUMOMAB
     Indication: B precursor type acute leukaemia
     Dosage: 28 MICROGRAM, QD (FOR 28 DAY), FIRST CYCLE
     Route: 065
     Dates: start: 20251209, end: 20251220

REACTIONS (1)
  - Immune effector cell-associated neurotoxicity syndrome [Unknown]
